FAERS Safety Report 4742083-5 (Version None)
Quarter: 2005Q3

REPORT INFORMATION
  Report Type: 
  Country: None (occurrence: None)
  Receive Date: 20050808
  Receipt Date: 20050723
  Transmission Date: 20060218
  Serious: Yes (Hospitalization)
  Sender: FDA-Public Use
  Company Number: 8011214

PATIENT
  Age: 3 Year
  Sex: Male
  Weight: 16 kg

DRUGS (1)
  1. EQUASYM [Suspect]
     Dosage: 40 MG ONCE PO
     Route: 048

REACTIONS (4)
  - ABDOMINAL PAIN [None]
  - ACCIDENTAL DRUG INTAKE BY CHILD [None]
  - CRYING [None]
  - PYREXIA [None]
